FAERS Safety Report 5336451-0 (Version None)
Quarter: 2007Q2

REPORT INFORMATION
  Report Type: 
  Country: None (occurrence: None)
  Receive Date: 20070529
  Receipt Date: 20070518
  Transmission Date: 20071010
  Serious: Yes (Life-Threatening, Hospitalization)
  Sender: FDA-Public Use
  Company Number: PHFR2007GB01102

PATIENT
  Age: 39 Year
  Sex: Male

DRUGS (4)
  1. CLOZARIL [Suspect]
     Indication: SCHIZOPHRENIA
     Route: 048
     Dates: start: 20070401
  2. CLOZARIL [Suspect]
     Dosage: UNK, UNK
     Route: 048
     Dates: start: 19940712, end: 20070301
  3. LORAZEPAM [Concomitant]
     Route: 065
  4. WATER [Suspect]
     Route: 065

REACTIONS (9)
  - BLOOD CREATINE PHOSPHOKINASE INCREASED [None]
  - CONVULSION [None]
  - HYPONATRAEMIA [None]
  - NEUROLEPTIC MALIGNANT SYNDROME [None]
  - PNEUMONIA ASPIRATION [None]
  - POLYDIPSIA PSYCHOGENIC [None]
  - RENAL FAILURE [None]
  - RESPIRATORY FAILURE [None]
  - RHABDOMYOLYSIS [None]
